FAERS Safety Report 16935258 (Version 2)
Quarter: 2019Q4

REPORT INFORMATION
  Report Type: Spontaneous
  Country: US (occurrence: US)
  Receive Date: 20191018
  Receipt Date: 20191127
  Transmission Date: 20200122
  Serious: No
  Sender: FDA-Public Use
  Company Number: US-ASTRAZENECA-2019SF44055

PATIENT
  Sex: Male
  Weight: 108.9 kg

DRUGS (2)
  1. SYMBICORT [Suspect]
     Active Substance: BUDESONIDE\FORMOTEROL FUMARATE DIHYDRATE
     Indication: BRONCHIAL DISORDER
     Dosage: 160/4.5, DAILY TWO PUFFS IN THE MORNING
     Route: 055
     Dates: start: 201909
  2. LISINOPRIL. [Suspect]
     Active Substance: LISINOPRIL
     Indication: BLOOD PRESSURE MEASUREMENT
     Dosage: EVERY MORNING
     Route: 048

REACTIONS (4)
  - Drug delivery system issue [Unknown]
  - Intentional product misuse [Unknown]
  - Device malfunction [Unknown]
  - Wheezing [Unknown]
